FAERS Safety Report 22604117 (Version 1)
Quarter: 2023Q2

REPORT INFORMATION
  Report Type: Spontaneous
  Country: US (occurrence: US)
  Receive Date: 20230615
  Receipt Date: 20230615
  Transmission Date: 20230721
  Serious: No
  Sender: FDA-Public Use
  Company Number: US-JNJFOC-20230617590

PATIENT
  Age: 54 Year
  Sex: Female
  Weight: 113.5 kg

DRUGS (2)
  1. TREMFYA [Suspect]
     Active Substance: GUSELKUMAB
     Indication: Psoriatic arthropathy
     Route: 058
     Dates: start: 202304
  2. TREMFYA [Suspect]
     Active Substance: GUSELKUMAB
     Indication: Colitis

REACTIONS (2)
  - Syringe issue [Unknown]
  - Product dose omission issue [Unknown]
